FAERS Safety Report 8903262 (Version 1)
Quarter: 2012Q4

REPORT INFORMATION
  Report Type: 
  Country: ES (occurrence: ES)
  Receive Date: 20121112
  Receipt Date: 20121112
  Transmission Date: 20130627
  Serious: Yes (Other)
  Sender: FDA-Public Use
  Company Number: ES-GE HEALTHCARE MEDICAL DIAGNOSTICS-E2B_00000011

PATIENT
  Age: 80 Year
  Sex: Female
  Weight: 65 kg

DRUGS (4)
  1. OMNIPAQUE [Suspect]
     Indication: PRODUCT USED FOR UNKNOWN INDICATION
     Route: 042
     Dates: start: 20120928, end: 20120928
  2. CILAZAPRIL [Concomitant]
     Route: 048
     Dates: start: 20120601
  3. OMEPRAZOL [Concomitant]
     Route: 048
     Dates: start: 20050101
  4. PROZAC [Concomitant]
     Route: 048
     Dates: start: 20000101

REACTIONS (2)
  - Urticaria [Recovered/Resolved]
  - Angioedema [Recovered/Resolved]
